FAERS Safety Report 10077590 (Version 2)
Quarter: 2014Q2

REPORT INFORMATION
  Report Type: Spontaneous
  Country: US (occurrence: US)
  Receive Date: 20140414
  Receipt Date: 20140414
  Transmission Date: 20141212
  Serious: No
  Sender: FDA-Public Use
  Company Number: US-BANPHARM-20131923

PATIENT
  Age: 86 Year
  Sex: Female
  Weight: 42.18 kg

DRUGS (3)
  1. ALEVE LIQUID GELS 220 MG [Suspect]
     Dosage: 1 DF, TID,
     Route: 048
     Dates: start: 20131123, end: 20131127
  2. ALEVE CAPLETS [Suspect]
     Dosage: 1 DF, BID,
     Route: 048
     Dates: start: 201309, end: 20131123
  3. VITAMIN B [Concomitant]

REACTIONS (2)
  - Diarrhoea [Not Recovered/Not Resolved]
  - Faeces discoloured [Not Recovered/Not Resolved]
